FAERS Safety Report 8480892-X (Version None)
Quarter: 2012Q2

REPORT INFORMATION
  Report Type: 
  Country: None (occurrence: None)
  Receive Date: 20120622
  Receipt Date: 20120613
  Transmission Date: 20120825
  Serious: Yes (Other)
  Sender: FDA-Public Use
  Company Number: 2012SP033177

PATIENT
  Age: 35 Year
  Sex: Female

DRUGS (1)
  1. NUVARING [Suspect]
     Indication: CONTRACEPTION
     Dates: start: 20110101

REACTIONS (4)
  - MATERNAL EXPOSURE DURING PREGNANCY [None]
  - HAEMATOMA [None]
  - ABORTION THREATENED [None]
  - PREGNANCY WITH CONTRACEPTIVE DEVICE [None]
